FAERS Safety Report 22395928 (Version 1)
Quarter: 2023Q2

REPORT INFORMATION
  Report Type: Spontaneous
  Country: US (occurrence: US)
  Receive Date: 20230601
  Receipt Date: 20230601
  Transmission Date: 20230722
  Serious: No
  Sender: FDA-Public Use
  Company Number: US-APIL-2314808US

PATIENT

DRUGS (1)
  1. BOTOX [Suspect]
     Active Substance: ONABOTULINUMTOXINA
     Indication: Botulinum toxin injection
     Dosage: UNK UNK, SINGLE

REACTIONS (2)
  - Off label use [Unknown]
  - Injection site pain [Unknown]
